FAERS Safety Report 20201823 (Version 1)
Quarter: 2021Q4

REPORT INFORMATION
  Report Type: Spontaneous
  Country: US (occurrence: US)
  Receive Date: 20211217
  Receipt Date: 20211217
  Transmission Date: 20220303
  Serious: No
  Sender: FDA-Public Use
  Company Number: US-BIOMARINAP-US-2021-139681

PATIENT
  Age: 24 Year
  Sex: Male

DRUGS (1)
  1. VIMIZIM [Suspect]
     Active Substance: ELOSULFASE ALFA
     Indication: Mucopolysaccharidosis IV
     Dosage: 70 MILLIGRAM, QW
     Route: 042
     Dates: start: 20210223

REACTIONS (2)
  - Gastroenteritis viral [Unknown]
  - Nasopharyngitis [Unknown]
